FAERS Safety Report 19813581 (Version 1)
Quarter: 2021Q3

REPORT INFORMATION
  Report Type: Report from Study
  Country: FR (occurrence: FR)
  Receive Date: 20210909
  Receipt Date: 20210909
  Transmission Date: 20211014
  Serious: Yes (Hospitalization)
  Sender: FDA-Public Use
  Company Number: FR-MYLANLABS-2021M1058796

PATIENT
  Age: 72 Year
  Sex: Male
  Weight: 90 kg

DRUGS (15)
  1. FIRMAGON [Suspect]
     Active Substance: DEGARELIX ACETATE
     Indication: PROSTATE CANCER
     Dosage: 80.00 MG, QCY
     Route: 058
     Dates: start: 20210124, end: 20210124
  2. ATORVASTATIN [Concomitant]
     Active Substance: ATORVASTATIN
     Indication: HYPERCHOLESTEROLAEMIA
     Dosage: 80 MG
     Route: 048
     Dates: start: 2016
  3. BISOPROLOL FUMARATE. [Concomitant]
     Active Substance: BISOPROLOL FUMARATE
     Indication: CARDIAC FAILURE
     Dosage: 5 MG
     Route: 048
  4. SPIRIVA [Concomitant]
     Active Substance: TIOTROPIUM BROMIDE MONOHYDRATE
     Indication: BRONCHOPNEUMOPATHY
     Dosage: UNK
     Route: 055
     Dates: start: 202007
  5. FUROSEMIDE. [Concomitant]
     Active Substance: FUROSEMIDE
     Indication: CARDIAC FAILURE
     Dosage: 20 MG
     Route: 048
     Dates: start: 202008
  6. CABAZITAXEL [Suspect]
     Active Substance: CABAZITAXEL
     Indication: PROSTATE CANCER
     Dosage: 40.00 MG, QCY (CUMULATIVE DOSE ADMINISTERED: 40 MG)
     Route: 042
     Dates: start: 20210316, end: 20210316
  7. POLARAMINE [Suspect]
     Active Substance: DEXCHLORPHENIRAMINE MALEATE
     Indication: PROSTATE CANCER
     Dosage: 5 MG, QCY (CUMULATIVE DOSE ADMINISTERED: 5 MG)
     Route: 042
     Dates: start: 20210316, end: 20210316
  8. KARDEGIC [Concomitant]
     Active Substance: ASPIRIN DL-LYSINE
     Indication: CARDIAC FAILURE
     Dosage: 75 MILLIGRAM
     Route: 048
     Dates: start: 200305
  9. PANTOPRAZOLE [Concomitant]
     Active Substance: PANTOPRAZOLE
     Indication: PROPHYLAXIS
     Dosage: 20 MG
     Route: 048
     Dates: start: 202008
  10. ONDANSETRON [Suspect]
     Active Substance: ONDANSETRON
     Indication: PROSTATE CANCER
     Dosage: 8 MG, QCY (CUMULATIVE DOSE ADMINISTERED: 8 MG)
     Route: 042
     Dates: start: 20210316, end: 20210316
  11. AZANTAC [Suspect]
     Active Substance: RANITIDINE HYDROCHLORIDE
     Indication: PROSTATE CANCER
     Dosage: 100 MG, QCY (CUMULATIVE DOSE ADMINISTERED: 100 MG)
     Route: 042
     Dates: start: 20210316, end: 20210316
  12. APIXABAN [Concomitant]
     Active Substance: APIXABAN
     Indication: CARDIAC FAILURE
     Dosage: 10 MG
     Route: 048
     Dates: start: 202008
  13. METHYLPREDNISOLONE. [Suspect]
     Active Substance: METHYLPREDNISOLONE
     Indication: PROSTATE CANCER
     Dosage: 120 MG, QCY (CUMULATIVE DOSE ADMINISTERED: 120 MG)
     Route: 042
     Dates: start: 20210316, end: 20210316
  14. FIRMAGON [Suspect]
     Active Substance: DEGARELIX ACETATE
     Dosage: 80 MG, QCY (CUMULATIVE DOSE ADMINISTERED: 240 MG)
     Route: 042
     Dates: start: 20210323, end: 20210323
  15. RAMIPRIL. [Concomitant]
     Active Substance: RAMIPRIL
     Indication: CARDIAC FAILURE
     Dosage: 125 MG
     Route: 048
     Dates: start: 202008

REACTIONS (1)
  - Febrile neutropenia [Not Recovered/Not Resolved]

NARRATIVE: CASE EVENT DATE: 20210327
